FAERS Safety Report 24593580 (Version 1)
Quarter: 2024Q4

REPORT INFORMATION
  Report Type: Spontaneous
  Country: US (occurrence: US)
  Receive Date: 20241108
  Receipt Date: 20241108
  Transmission Date: 20250115
  Serious: Yes (Hospitalization)
  Sender: NOVARTIS
  Company Number: US-002147023-NVSC2024US213366

PATIENT
  Sex: Male

DRUGS (1)
  1. ENTRESTO [Suspect]
     Active Substance: SACUBITRIL\VALSARTAN
     Indication: Product used for unknown indication
     Dosage: UNK, QD (24/26 MG)
     Route: 048

REACTIONS (7)
  - Syncope [Unknown]
  - COVID-19 [Unknown]
  - Cardiac disorder [Unknown]
  - Somnolence [Unknown]
  - Heart rate decreased [Unknown]
  - Dizziness [Unknown]
  - Product use issue [Unknown]
